FAERS Safety Report 15640614 (Version 2)
Quarter: 2020Q2

REPORT INFORMATION
  Report Type: Report from Study
  Country: GB (occurrence: GB)
  Receive Date: 20181120
  Receipt Date: 20200423
  Transmission Date: 20200713
  Serious: Yes (Other)
  Sender: FDA-Public Use
  Company Number: GB-SA-2018SA311853

PATIENT
  Age: 68 Year
  Sex: Female

DRUGS (3)
  1. ALIROCUMAB [Suspect]
     Active Substance: ALIROCUMAB
     Indication: BLOOD CHOLESTEROL INCREASED
     Dosage: 150 MG, QOW
     Route: 058
     Dates: start: 20190831
  2. ALIROCUMAB [Suspect]
     Active Substance: ALIROCUMAB
     Dosage: 150 MG, QOW
     Route: 058
     Dates: start: 20200419
  3. DULOXETINE. [Concomitant]
     Active Substance: DULOXETINE

REACTIONS (10)
  - Influenza [Unknown]
  - Unevaluable event [Not Recovered/Not Resolved]
  - Lower respiratory tract infection [Unknown]
  - Injection site swelling [Unknown]
  - Nausea [Not Recovered/Not Resolved]
  - Incorrect dose administered by device [Unknown]
  - Injection site erythema [Unknown]
  - Product dose omission [Unknown]
  - Pain in extremity [Unknown]
  - Wrong technique in device usage process [Unknown]
